FAERS Safety Report 5725239-4 (Version None)
Quarter: 2008Q2

REPORT INFORMATION
  Report Type: 
  Country: None (occurrence: None)
  Receive Date: 20080501
  Receipt Date: 20080417
  Transmission Date: 20081010
  Serious: Yes (Other)
  Sender: FDA-Public Use
  Company Number: CA-BAYER-200711955GDS

PATIENT
  Age: 17 Year
  Sex: Male

DRUGS (2)
  1. ASPIRIN [Suspect]
     Indication: SUICIDE ATTEMPT
     Route: 065
     Dates: start: 20060122
  2. RITALIN [Suspect]
     Indication: SUICIDE ATTEMPT
     Route: 065
     Dates: start: 20060122

REACTIONS (11)
  - BLOOD CREATINE PHOSPHOKINASE INCREASED [None]
  - BLOOD UREA INCREASED [None]
  - DEPRESSION [None]
  - DRUG LEVEL INCREASED [None]
  - HYPOACUSIS [None]
  - HYPOKALAEMIA [None]
  - INTENTIONAL OVERDOSE [None]
  - RESPIRATORY RATE INCREASED [None]
  - TACHYCARDIA [None]
  - THERAPEUTIC AGENT TOXICITY [None]
  - VOMITING [None]
